FAERS Safety Report 20322608 (Version 1)
Quarter: 2022Q1

REPORT INFORMATION
  Report Type: Spontaneous
  Country: US (occurrence: None)
  Receive Date: 20220111
  Receipt Date: 20220111
  Transmission Date: 20220423
  Serious: Yes (Death)
  Sender: FDA-Public Use
  Company Number: None

PATIENT
  Age: 35 Year
  Sex: Male

DRUGS (1)
  1. EPCLUSA [Suspect]
     Active Substance: SOFOSBUVIR\VELPATASVIR
     Dosage: OTHER QUANTITY : 400/100MG;?FREQUENCY : DAILY;?
     Route: 048
     Dates: start: 202012, end: 202102

REACTIONS (1)
  - Death [None]

NARRATIVE: CASE EVENT DATE: 20220109
